FAERS Safety Report 11107155 (Version 2)
Quarter: 2015Q3

REPORT INFORMATION
  Report Type: Report from Study
  Country: US (occurrence: US)
  Receive Date: 20150512
  Receipt Date: 20150804
  Transmission Date: 20151125
  Serious: Yes (Other)
  Sender: FDA-Public Use
  Company Number: US-ABBVIE-15P-163-1388691-00

PATIENT
  Age: 38 Year
  Sex: Female

DRUGS (2)
  1. HUMIRA [Suspect]
     Active Substance: ADALIMUMAB
     Indication: RHEUMATOID ARTHRITIS
     Route: 065
     Dates: start: 20131217, end: 20150413
  2. HUMIRA [Suspect]
     Active Substance: ADALIMUMAB
     Route: 058
     Dates: start: 201506

REACTIONS (4)
  - Musculoskeletal stiffness [Not Recovered/Not Resolved]
  - Cerebrospinal fluid leakage [Recovered/Resolved]
  - Pain [Not Recovered/Not Resolved]
  - Encephalocele [Not Recovered/Not Resolved]

NARRATIVE: CASE EVENT DATE: 20150413
